FAERS Safety Report 15424463 (Version 1)
Quarter: 2018Q3

REPORT INFORMATION
  Report Type: Other
  Country: ES (occurrence: ES)
  Receive Date: 20180925
  Receipt Date: 20180925
  Transmission Date: 20181010
  Serious: Yes (Hospitalization, Other)
  Sender: FDA-Public Use
  Company Number: ES-APOTEX-2018AP021059

PATIENT
  Age: 84 Year
  Sex: Female

DRUGS (10)
  1. ACETYLSALICYLIC ACID [Suspect]
     Active Substance: ASPIRIN
     Indication: CEREBROVASCULAR ACCIDENT
     Dosage: 300 MG CADA 24 HORAS
     Route: 048
     Dates: start: 20170104, end: 20170205
  2. PREDNISON [Concomitant]
     Active Substance: PREDNISONE
     Indication: PRODUCT USED FOR UNKNOWN INDICATION
     Dosage: 10 MG CADA 24 HORAS
     Route: 065
     Dates: start: 20170104
  3. OMEPRAZOLE. [Suspect]
     Active Substance: OMEPRAZOLE
     Indication: PROPHYLAXIS AGAINST GASTROINTESTINAL ULCER
     Dosage: 20 MG CADA 24 HORAS
     Route: 048
     Dates: start: 20170104, end: 20170223
  4. HIDROFEROL [Concomitant]
     Active Substance: CALCIFEDIOL
     Indication: PRODUCT USED FOR UNKNOWN INDICATION
     Dosage: 1 AMPOLLA CADA 3 SEMANAS, 1 AMPOULE EVERY 3 WEEKS
     Route: 065
     Dates: start: 20170119
  5. ATORVASTATIN [Concomitant]
     Active Substance: ATORVASTATIN
     Indication: PRODUCT USED FOR UNKNOWN INDICATION
     Dosage: 80 MG, EVERY 24 HOURSUNK,80 MG CADA 24 HORAS
     Route: 065
     Dates: start: 20170119
  6. LEVOTIROXIN [Concomitant]
     Active Substance: LEVOTHYROXINE SODIUM
     Indication: PRODUCT USED FOR UNKNOWN INDICATION
     Dosage: 50 MG, EVERY 24 HOURLYUNK,50 MCG CADA 24 HORAS
     Route: 065
     Dates: start: 20160218
  7. METAMIZOL                          /06276701/ [Concomitant]
     Active Substance: METAMIZOLE
     Indication: PRODUCT USED FOR UNKNOWN INDICATION
     Dosage: 575 MG, UNK, 575 MG CADA 8 HORAS
     Route: 065
     Dates: start: 20160218
  8. ENALAPRIL/HIDROCLOROTIAZIDA [Concomitant]
     Indication: PRODUCT USED FOR UNKNOWN INDICATION
     Dosage: 1 TABLET EVERY 24 HOURLYUNK, UNK20/12,5 MG 1 COMPRIMIDO CADA 24 HORAS
     Route: 065
     Dates: start: 20171118
  9. PARACETAMOL [Concomitant]
     Active Substance: ACETAMINOPHEN
     Indication: PRODUCT USED FOR UNKNOWN INDICATION
     Dosage: 1 G, EVERY 8 HOURLY , 1 GR CADA 8 HORAS UNK
     Route: 065
     Dates: start: 20150102
  10. ZANTAC [Concomitant]
     Active Substance: RANITIDINE HYDROCHLORIDE
     Indication: PRODUCT USED FOR UNKNOWN INDICATION
     Dosage: 50 MG,EVERY 24 HOURS, 50 MG CADA24 HORAS UNK
     Route: 065
     Dates: start: 20170204

REACTIONS (1)
  - Hepatitis cholestatic [Recovered/Resolved]

NARRATIVE: CASE EVENT DATE: 20170204
